FAERS Safety Report 22135882 (Version 3)
Quarter: 2023Q2

REPORT INFORMATION
  Report Type: Report from Study
  Country: US (occurrence: US)
  Receive Date: 20230324
  Receipt Date: 20230622
  Transmission Date: 20230722
  Serious: Yes (Other)
  Sender: FDA-Public Use
  Company Number: US-XERIS PHARMACEUTICALS-2023XER00062

PATIENT
  Sex: Female

DRUGS (2)
  1. RECORLEV [Suspect]
     Active Substance: LEVOKETOCONAZOLE
     Indication: Pituitary-dependent Cushing^s syndrome
     Dosage: 1 TABLET (150 MG), 2X/DAY
     Route: 048
     Dates: start: 20230222
  2. HYDROCORTISONE [Suspect]
     Active Substance: HYDROCORTISONE
     Dosage: UNK
     Dates: start: 2023

REACTIONS (11)
  - Nausea [Recovered/Resolved]
  - Fatigue [Recovering/Resolving]
  - Aspartate aminotransferase increased [Recovered/Resolved]
  - Vomiting [Recovered/Resolved]
  - Pyrexia [Unknown]
  - Malaise [Recovered/Resolved]
  - Cortisol increased [Recovered/Resolved]
  - Surgery [Unknown]
  - Pain [Recovered/Resolved]
  - Headache [Recovering/Resolving]
  - Cortisol decreased [Recovered/Resolved]

NARRATIVE: CASE EVENT DATE: 20230101
